FAERS Safety Report 6447100-2 (Version None)
Quarter: 2009Q4

REPORT INFORMATION
  Report Type: 
  Country: None (occurrence: None)
  Receive Date: 20091119
  Receipt Date: 20091020
  Transmission Date: 20100525
  Serious: Yes (Death, Hospitalization)
  Sender: FDA-Public Use
  Company Number: US-BAXTER-2009BH016281

PATIENT
  Age: 73 Year
  Sex: Male
  Weight: 90 kg

DRUGS (1)
  1. DIANEAL [Suspect]
     Indication: PERITONEAL DIALYSIS
     Route: 033

REACTIONS (3)
  - ASTHENIA [None]
  - BLOOD PRESSURE ABNORMAL [None]
  - RESPIRATORY DISTRESS [None]
